FAERS Safety Report 8492122 (Version 2)
Quarter: 2013Q1

REPORT INFORMATION
  Report Type: Spontaneous
  Country: CH (occurrence: CH)
  Receive Date: 20120403
  Receipt Date: 20130221
  Transmission Date: 20140127
  Serious: Yes (Other)
  Sender: FDA-Public Use
  Company Number: CH-PFIZER INC-2012081030

PATIENT
  Age: 51 Year
  Sex: Female

DRUGS (2)
  1. LYRICA [Suspect]
     Dosage: 75 MG, 2X/DAY
  2. METHADONE [Interacting]
     Dosage: 150 MG, 2X/DAY
     Dates: start: 2006

REACTIONS (7)
  - Drug interaction [Recovering/Resolving]
  - Withdrawal syndrome [Recovering/Resolving]
  - Suicidal ideation [Recovering/Resolving]
  - Abdominal pain [Recovering/Resolving]
  - Restlessness [Recovering/Resolving]
  - Depression [Recovering/Resolving]
  - Insomnia [Recovering/Resolving]
